FAERS Safety Report 16876881 (Version 1)
Quarter: 2019Q4

REPORT INFORMATION
  Report Type: Spontaneous
  Country: FR (occurrence: FR)
  Receive Date: 20191002
  Receipt Date: 20191002
  Transmission Date: 20200122
  Serious: Yes (Hospitalization, Other)
  Sender: FDA-Public Use
  Company Number: FR-MYLANLABS-2019M1091584

PATIENT
  Age: 12 Year
  Sex: Female
  Weight: 74 kg

DRUGS (3)
  1. PARACETAMOL [Suspect]
     Active Substance: ACETAMINOPHEN
     Indication: PRODUCT USED FOR UNKNOWN INDICATION
     Dosage: 9 GRAM
     Route: 048
     Dates: start: 20190314
  2. TRAMADOL. [Suspect]
     Active Substance: TRAMADOL
     Indication: PRODUCT USED FOR UNKNOWN INDICATION
     Dosage: UNK
     Route: 048
     Dates: start: 20190314
  3. STRESAM [Suspect]
     Active Substance: ETIFOXINE
     Indication: PRODUCT USED FOR UNKNOWN INDICATION
     Dosage: 19 DOSAGE FORM
     Route: 048
     Dates: start: 20190314

REACTIONS (3)
  - Somnolence [Recovered/Resolved]
  - Poisoning deliberate [Unknown]
  - Hypoglycaemia [Recovered/Resolved]

NARRATIVE: CASE EVENT DATE: 20190314
